FAERS Safety Report 15846596 (Version 2)
Quarter: 2019Q1

REPORT INFORMATION
  Report Type: Report from Study
  Country: None (occurrence: US)
  Receive Date: 20190121
  Receipt Date: 20190205
  Transmission Date: 20190417
  Serious: Yes (Other)
  Sender: FDA-Public Use
  Company Number: US-ABBVIE-18K-163-2399782-00

PATIENT
  Age: 77 Year
  Sex: Male

DRUGS (2)
  1. HUMIRA [Suspect]
     Active Substance: ADALIMUMAB
     Indication: CROHN^S DISEASE
     Route: 058
     Dates: start: 201805, end: 2018
  2. HUMIRA [Suspect]
     Active Substance: ADALIMUMAB
     Route: 058
     Dates: start: 20180611, end: 201809

REACTIONS (6)
  - Abdominal adhesions [Unknown]
  - Abdominal adhesions [Unknown]
  - Drug ineffective [Not Recovered/Not Resolved]
  - Intestinal stenosis [Unknown]
  - Heart valve operation [Unknown]
  - Staphylococcal skin infection [Not Recovered/Not Resolved]

NARRATIVE: CASE EVENT DATE: 2018
